FAERS Safety Report 4313070-6 (Version None)
Quarter: 2004Q1

REPORT INFORMATION
  Report Type: 
  Country: None (occurrence: None)
  Receive Date: 20040305
  Receipt Date: 20040305
  Transmission Date: 20041129
  Serious: Yes (Life-Threatening, Hospitalization)
  Sender: FDA-Public Use
  Company Number: None

PATIENT
  Age: 8 Year
  Sex: Female
  Weight: 27.9 kg

DRUGS (9)
  1. ELSPAR [Suspect]
     Indication: ACUTE MYELOID LEUKAEMIA
     Dosage: 6000UNITS Q 24 HR INTRAVENOUS
     Route: 042
     Dates: start: 20030502, end: 20030509
  2. ONCASPAR [Suspect]
     Indication: ACUTE MYELOID LEUKAEMIA
     Dosage: 1250 UNITS INTRAVENOUS
     Route: 042
     Dates: start: 20031223, end: 20031223
  3. TPN-NOVAMINE- [Concomitant]
  4. VFEND [Concomitant]
  5. MEPRON [Concomitant]
  6. PERIDEX [Concomitant]
  7. DURAGESIC [Concomitant]
  8. KYTRIL [Concomitant]
  9. ZOFRAN [Concomitant]

REACTIONS (1)
  - PANCREATITIS ACUTE [None]
